FAERS Safety Report 20595742 (Version 1)
Quarter: 2022Q1

REPORT INFORMATION
  Report Type: Spontaneous
  Country: US (occurrence: None)
  Receive Date: 20220315
  Receipt Date: 20220315
  Transmission Date: 20220423
  Serious: Yes (Hospitalization)
  Sender: FDA-Public Use
  Company Number: None

PATIENT
  Age: 64 Year
  Sex: Female

DRUGS (17)
  1. SOTROVIMAB [Suspect]
     Active Substance: SOTROVIMAB
     Indication: COVID-19
     Dosage: FREQUENCY : ONCE;?
     Route: 042
     Dates: start: 20220228, end: 20220228
  2. albuterol HFA (PROAIR HFA) 90 mcg/actuation inhaler [Concomitant]
  3. ascorbic acid, vitamin C, (VITAMIN C) 1,000 mg tablet [Concomitant]
  4. buPROPion SR (Wellbutrin SR) 150 mg 12 hr tablet [Concomitant]
  5. calcium carbonate-vitamin D3 (Calcium 600 + D,3,) 600-125 mg tab daily [Concomitant]
  6. cholecalciferol (VITAMIN D3) 50 mcg (2,000 unit) capsule [Concomitant]
  7. (advAIR DISKUS) 500-50 mcg/dose diskus inhaler [Concomitant]
  8. fluticasone propionate (FLONASE) 50 mcg/actuation nasal spray [Concomitant]
  9. gabapentin (Neurontin) 300 mg capsule (C-V) [Concomitant]
  10. hydrOXYchloroQUINE (PlaqueniL) 200 mg tablet [Concomitant]
  11. LORazepam (Ativan) 0.5 mg tablet (C-IV) [Concomitant]
  12. magnesium oxide,aspartate,citr (TRIPLE MAGNESIUM COMPLEX ORAL) [Concomitant]
  13. multivitamin (THERAGRAN) tablet [Concomitant]
  14. omeprazole (PriLOSEC) 20 mg capsule [Concomitant]
  15. triamterene-hydrochlorothiazid (MAXZIDE) 75-50 mg per tablet [Concomitant]
  16. Tudorza Pressair 400 mcg/actuation inhaler [Concomitant]
  17. zinc gluconate 50 mg tablet [Concomitant]

REACTIONS (5)
  - COVID-19 pneumonia [None]
  - Acute respiratory failure [None]
  - Bacterial infection [None]
  - Superinfection [None]
  - Chronic obstructive pulmonary disease [None]

NARRATIVE: CASE EVENT DATE: 20220304
